FAERS Safety Report 11802857 (Version 1)
Quarter: 2015Q4

REPORT INFORMATION
  Report Type: Report from Study
  Country: US (occurrence: US)
  Receive Date: 20151204
  Receipt Date: 20151204
  Transmission Date: 20160305
  Serious: Yes (Hospitalization, Other)
  Sender: FDA-Public Use
  Company Number: US-B.I. PHARMACEUTICALS,INC./RIDGEFIELD-2015-BI-10775BI

PATIENT
  Age: 67 Year
  Sex: Male
  Weight: 99 kg

DRUGS (2)
  1. PRADAXA [Suspect]
     Active Substance: DABIGATRAN ETEXILATE MESYLATE
     Dosage: 150 MG
     Route: 048
     Dates: start: 20130327
  2. PRADAXA [Suspect]
     Active Substance: DABIGATRAN ETEXILATE MESYLATE
     Indication: ATRIAL FIBRILLATION
     Dosage: 150 MG
     Route: 048
     Dates: start: 20130321, end: 20130325

REACTIONS (3)
  - Haematuria [Recovered/Resolved]
  - Pyrexia [Recovered/Resolved]
  - Urogenital haemorrhage [Unknown]

NARRATIVE: CASE EVENT DATE: 20130323
